FAERS Safety Report 10466171 (Version 2)
Quarter: 2014Q3

REPORT INFORMATION
  Report Type: Report from Study
  Country: AU (occurrence: AU)
  Receive Date: 20140922
  Receipt Date: 20140922
  Transmission Date: 20150326
  Serious: Yes (Other)
  Sender: FDA-Public Use
  Company Number: AU-AUROBINDO-AUR-APL-2014-07775

PATIENT
  Age: 53 Year
  Sex: Female
  Weight: 90 kg

DRUGS (2)
  1. DOTHIEPIN [Suspect]
     Active Substance: DOTHIEPIN\DOTHIEPIN HYDROCHLORIDE
     Indication: PRODUCT USED FOR UNKNOWN INDICATION
     Route: 048
  2. OLANZAPINE. [Suspect]
     Active Substance: OLANZAPINE
     Indication: PRODUCT USED FOR UNKNOWN INDICATION
     Route: 048

REACTIONS (3)
  - Depressed level of consciousness [Unknown]
  - Toxicity to various agents [None]
  - Toxicity to various agents [Unknown]
